FAERS Safety Report 10173819 (Version 1)
Quarter: 2014Q2

REPORT INFORMATION
  Report Type: Spontaneous
  Country: US (occurrence: None)
  Receive Date: 20140514
  Receipt Date: 20140514
  Transmission Date: 20141212
  Serious: Yes (Disabling, Other)
  Sender: FDA-Public Use
  Company Number: None

PATIENT
  Age: 50 Year
  Sex: Male
  Weight: 87.54 kg

DRUGS (2)
  1. MEDROL [Suspect]
     Dosage: INJECTED IN SPINAL AREA
  2. LIDOCAINE [Suspect]

REACTIONS (2)
  - Pain [None]
  - Condition aggravated [None]
